FAERS Safety Report 12881318 (Version 3)
Quarter: 2017Q1

REPORT INFORMATION
  Report Type: Spontaneous
  Country: US (occurrence: US)
  Receive Date: 20161025
  Receipt Date: 20170328
  Transmission Date: 20170428
  Serious: Yes (Other)
  Sender: FDA-Public Use
  Company Number: US-JNJFOC-20161003667

PATIENT
  Age: 50 Year
  Sex: Male

DRUGS (3)
  1. RISPERDAL [Suspect]
     Active Substance: RISPERIDONE
     Indication: DEPRESSION
     Route: 048
  2. RISPERDAL [Suspect]
     Active Substance: RISPERIDONE
     Indication: DEPRESSION
     Route: 048
     Dates: start: 2014, end: 2015
  3. RISPERIDONE. [Suspect]
     Active Substance: RISPERIDONE
     Indication: PRODUCT USED FOR UNKNOWN INDICATION
     Route: 048

REACTIONS (4)
  - Obesity [Unknown]
  - Gynaecomastia [Unknown]
  - Off label use [Unknown]
  - Product use issue [Unknown]

NARRATIVE: CASE EVENT DATE: 2013
